FAERS Safety Report 7363151-8 (Version None)
Quarter: 2011Q1

REPORT INFORMATION
  Report Type: 
  Country: None (occurrence: None)
  Receive Date: 20110321
  Receipt Date: 20110301
  Transmission Date: 20110831
  Serious: Yes (Death)
  Sender: FDA-Public Use
  Company Number: US-BAYER-200929616NA

PATIENT
  Sex: Male
  Weight: 70 kg

DRUGS (1)
  1. TRASYLOL [Suspect]
     Indication: CARDIAC OPERATION

REACTIONS (9)
  - UNEVALUABLE EVENT [None]
  - DEPRESSION [None]
  - ANHEDONIA [None]
  - INJURY [None]
  - ANXIETY [None]
  - RENAL FAILURE [None]
  - DEATH [None]
  - FEAR [None]
  - PAIN [None]
